FAERS Safety Report 8006468-6 (Version None)
Quarter: 2011Q4

REPORT INFORMATION
  Report Type: 
  Country: None (occurrence: None)
  Receive Date: 20111226
  Receipt Date: 20110922
  Transmission Date: 20120403
  Serious: Yes (Death)
  Sender: FDA-Public Use
  Company Number: PHHY2011NL109118

PATIENT
  Sex: Male

DRUGS (4)
  1. ZOMETA [Suspect]
     Indication: PROSTATE CANCER
     Dosage: 4MG/5ML ONCE PER 84 DAYS
     Route: 042
     Dates: start: 20100723
  2. CHEMOTHERAPEUTICS [Concomitant]
  3. ZOMETA [Suspect]
     Dosage: 4MG/5ML ONCE PER 84 DAYS
     Route: 042
     Dates: start: 20110628
  4. ZOMETA [Suspect]
     Dosage: 4MG/5ML ONCE PER 84 DAYS
     Route: 042
     Dates: start: 20110922

REACTIONS (1)
  - DEATH [None]
